FAERS Safety Report 6939641-6 (Version None)
Quarter: 2010Q3

REPORT INFORMATION
  Report Type: 
  Country: None (occurrence: None)
  Receive Date: 20100825
  Receipt Date: 20100816
  Transmission Date: 20110219
  Serious: Yes (Hospitalization, Other)
  Sender: FDA-Public Use
  Company Number: US-ASTRAZENECA-2007UW05484

PATIENT
  Age: 19193 Day
  Sex: Female
  Weight: 78 kg

DRUGS (9)
  1. SEROQUEL [Suspect]
     Indication: DEPRESSION
     Dosage: 25-200 MG
     Route: 048
     Dates: start: 20010227, end: 20020620
  2. SEROQUEL [Suspect]
     Dosage: 25-200 MG
     Route: 048
     Dates: start: 20011221, end: 20020620
  3. AMBIEN [Concomitant]
     Indication: INSOMNIA
  4. PREMARIN [Concomitant]
  5. WELLBUTRIN [Concomitant]
  6. DIPHENHYDRAMINE [Concomitant]
  7. CELEBREX [Concomitant]
     Route: 048
  8. GLUCOPHAGE [Concomitant]
  9. NEURONTIN [Concomitant]

REACTIONS (3)
  - DIABETIC NEUROPATHY [None]
  - NEUROPATHY PERIPHERAL [None]
  - TYPE 2 DIABETES MELLITUS [None]
